FAERS Safety Report 23116411 (Version 1)
Quarter: 2023Q4

REPORT INFORMATION
  Report Type: Spontaneous
  Country: US (occurrence: US)
  Receive Date: 20231027
  Receipt Date: 20231027
  Transmission Date: 20240110
  Serious: Yes (Other)
  Sender: FDA-Public Use
  Company Number: US-ADVANZ PHARMA-202309009138

PATIENT

DRUGS (15)
  1. CLONIDINE [Suspect]
     Active Substance: CLONIDINE
     Dosage: 100 UG, TID
  2. CLONIDINE [Suspect]
     Active Substance: CLONIDINE
     Dosage: 200 UG, QD
  3. DIAZEPAM [Suspect]
     Active Substance: DIAZEPAM
     Dosage: 10 MG, TID
  4. TRIHEXYPHENIDYL [Suspect]
     Active Substance: TRIHEXYPHENIDYL
     Indication: Dystonia
     Dosage: 0.4 MG, TID
  5. TRIHEXYPHENIDYL [Suspect]
     Active Substance: TRIHEXYPHENIDYL
     Dosage: 2 MG, TID
  6. GABAPENTIN [Suspect]
     Active Substance: GABAPENTIN
     Dosage: 50 MG, BID
  7. GABAPENTIN [Suspect]
     Active Substance: GABAPENTIN
     Dosage: 150 MG, BID
  8. GABAPENTIN [Suspect]
     Active Substance: GABAPENTIN
     Dosage: 150 MG, TID
  9. TETRABENAZINE [Suspect]
     Active Substance: TETRABENAZINE
     Indication: Dystonia
     Dosage: UNK
  10. DEXMEDETOMIDINE [Suspect]
     Active Substance: DEXMEDETOMIDINE
     Dosage: 2 UG/KG/HR
     Route: 042
  11. MIDAZOLAM [Suspect]
     Active Substance: MIDAZOLAM
     Dosage: 0.14 MG/KG/HR
  12. CLONAZEPAM [Suspect]
     Active Substance: CLONAZEPAM
     Dosage: 0.125 MG
  13. CLONAZEPAM [Suspect]
     Active Substance: CLONAZEPAM
     Dosage: 0.125 MG
  14. CLONAZEPAM [Suspect]
     Active Substance: CLONAZEPAM
     Dosage: 0.25 MG
  15. BACLOFEN [Concomitant]
     Active Substance: BACLOFEN
     Dosage: 5 MG, TID

REACTIONS (2)
  - Dystonia [Recovered/Resolved]
  - Off label use [Unknown]
